FAERS Safety Report 19922191 (Version 12)
Quarter: 2022Q4

REPORT INFORMATION
  Report Type: Report from Study
  Country: KR (occurrence: KR)
  Receive Date: 20211006
  Receipt Date: 20221027
  Transmission Date: 20230113
  Serious: Yes (Death, Hospitalization, Other)
  Sender: FDA-Public Use
  Company Number: NVSC2021KR226935

PATIENT
  Age: 39 Year
  Sex: Female

DRUGS (33)
  1. KISQALI [Suspect]
     Active Substance: RIBOCICLIB
     Indication: Breast cancer metastatic
     Dosage: 600 MG, QD
     Route: 048
     Dates: start: 20210908, end: 20210928
  2. KISQALI [Suspect]
     Active Substance: RIBOCICLIB
     Dosage: 600 MG, QD
     Route: 048
     Dates: start: 20211008, end: 20211028
  3. KISQALI [Suspect]
     Active Substance: RIBOCICLIB
     Dosage: 600 MG, QD
     Route: 048
     Dates: start: 20211105, end: 20211125
  4. KISQALI [Suspect]
     Active Substance: RIBOCICLIB
     Dosage: 600 MG, QD
     Route: 048
     Dates: start: 20211203, end: 20211223
  5. FASLODEX [Concomitant]
     Active Substance: FULVESTRANT
     Indication: Breast cancer
     Dosage: 500 MG, QD
     Route: 030
     Dates: start: 20210908, end: 20210908
  6. FASLODEX [Concomitant]
     Active Substance: FULVESTRANT
     Dosage: 500 MG, QD
     Route: 030
     Dates: start: 20210925, end: 20210925
  7. FASLODEX [Concomitant]
     Active Substance: FULVESTRANT
     Dosage: 500 MG, QD
     Route: 030
     Dates: start: 20211008, end: 20211008
  8. FASLODEX [Concomitant]
     Active Substance: FULVESTRANT
     Dosage: 500 MG, QD
     Route: 030
     Dates: start: 20211105, end: 20211105
  9. FASLODEX [Concomitant]
     Active Substance: FULVESTRANT
     Dosage: 500 MG, QD
     Route: 030
     Dates: start: 20211203, end: 20211203
  10. PLAKON [Concomitant]
     Indication: Prophylaxis
     Dosage: 2 ML, QD
     Route: 042
     Dates: start: 20210907, end: 20210909
  11. PLAKON [Concomitant]
     Dosage: 2 ML, QD
     Route: 042
     Dates: start: 20210924, end: 20210924
  12. PLAKON [Concomitant]
     Dosage: 2 ML, QD
     Route: 042
     Dates: start: 20211007, end: 20211008
  13. PLAKON [Concomitant]
     Dosage: 2 ML, QD
     Route: 042
     Dates: start: 20211021, end: 20211021
  14. PLAKON [Concomitant]
     Dosage: 2 ML, QD
     Route: 042
     Dates: start: 20211104, end: 20211105
  15. PLAKON [Concomitant]
     Dosage: 2 ML, QD
     Route: 042
     Dates: start: 20211202, end: 20211202
  16. PLAKON [Concomitant]
     Dosage: 2 ML, QD
     Route: 042
     Dates: start: 20211230, end: 20211231
  17. METOCLOPRAMIDE HYDROCHLORIDE [Concomitant]
     Active Substance: METOCLOPRAMIDE HYDROCHLORIDE
     Indication: Prophylaxis
     Dosage: 15 MG, QD
     Route: 048
     Dates: start: 20210908, end: 20210914
  18. METOCLOPRAMIDE HYDROCHLORIDE [Concomitant]
     Active Substance: METOCLOPRAMIDE HYDROCHLORIDE
     Dosage: 15 MG, QD
     Route: 048
     Dates: start: 20211022, end: 20211022
  19. METOCLOPRAMIDE HYDROCHLORIDE [Concomitant]
     Active Substance: METOCLOPRAMIDE HYDROCHLORIDE
     Dosage: 15 MG, QD
     Route: 048
     Dates: start: 20211105, end: 20211109
  20. METOCLOPRAMIDE HYDROCHLORIDE [Concomitant]
     Active Substance: METOCLOPRAMIDE HYDROCHLORIDE
     Dosage: 15 MG, QD
     Route: 048
     Dates: start: 20211203, end: 20211207
  21. FURIX [Concomitant]
     Indication: Prophylaxis
     Dosage: 20 MG, QD
     Route: 048
     Dates: start: 20210909, end: 20210917
  22. PENIRAMIN [Concomitant]
     Indication: Prophylaxis
     Dosage: 4 MG, QD
     Route: 030
     Dates: start: 20211104, end: 20211104
  23. VITAMIN K1 [Concomitant]
     Active Substance: PHYTONADIONE
     Indication: Prophylaxis
     Dosage: 10 MG, QD
     Route: 030
     Dates: start: 20210924, end: 20210924
  24. VITAMIN K1 [Concomitant]
     Active Substance: PHYTONADIONE
     Dosage: 10 MG, QD
     Route: 030
     Dates: start: 20220104, end: 20220104
  25. VITAMIN K1 [Concomitant]
     Active Substance: PHYTONADIONE
     Dosage: 10 MG, QD
     Route: 030
     Dates: start: 20220112, end: 20220114
  26. RAMOSETRON HYDROCHLORIDE [Concomitant]
     Active Substance: RAMOSETRON HYDROCHLORIDE
     Indication: Prophylaxis
     Dosage: 0.1 MG, QD
     Route: 048
     Dates: start: 20211203, end: 20211205
  27. WINUF [Concomitant]
     Indication: Prophylaxis
     Dosage: 1085 ML, QD
     Route: 042
     Dates: start: 20211230
  28. WINUF [Concomitant]
     Dosage: 1085 ML
     Route: 065
     Dates: start: 20220101, end: 20220105
  29. WINUF [Concomitant]
     Dosage: 1085 ML
     Route: 065
     Dates: start: 20220109
  30. PACETA [Concomitant]
     Indication: Prophylaxis
     Dosage: 5 ML, QD
     Route: 042
     Dates: start: 20211230, end: 20211231
  31. FENTANYL [Concomitant]
     Active Substance: FENTANYL
     Indication: Prophylaxis
     Dosage: 50 UG, QD
     Route: 042
     Dates: start: 20220111, end: 20220111
  32. MAGO [Concomitant]
     Indication: Prophylaxis
     Dosage: 2000 MG, QD
     Route: 048
     Dates: start: 20220103, end: 20220106
  33. VITAMINS [Concomitant]
     Active Substance: VITAMINS
     Indication: Prophylaxis
     Dosage: UNK, QD ( 1VIAL)
     Route: 042
     Dates: start: 20210907, end: 20210908

REACTIONS (9)
  - Dyspnoea [Fatal]
  - Thrombocytopenia [Recovered/Resolved with Sequelae]
  - Thrombocytopenia [Recovered/Resolved]
  - Thrombocytopenia [Recovered/Resolved]
  - Thrombocytopenia [Recovered/Resolved]
  - Thrombocytopenia [Recovered/Resolved]
  - Thrombocytopenia [Recovered/Resolved]
  - Neutropenia [Recovered/Resolved]
  - Pyrexia [Recovered/Resolved]

NARRATIVE: CASE EVENT DATE: 20210923
